FAERS Safety Report 15884021 (Version 1)
Quarter: 2019Q1

REPORT INFORMATION
  Report Type: Spontaneous
  Country: US (occurrence: US)
  Receive Date: 20190129
  Receipt Date: 20190129
  Transmission Date: 20190417
  Serious: Yes (Other)
  Sender: FDA-Public Use
  Company Number: US-CELGENEUS-USA-20190106850

PATIENT
  Sex: Male

DRUGS (3)
  1. POMALYST [Suspect]
     Active Substance: POMALIDOMIDE
     Indication: PLASMA CELL MYELOMA
     Dosage: 2 MILLIGRAM
     Route: 048
     Dates: start: 201605
  2. POMALYST [Suspect]
     Active Substance: POMALIDOMIDE
     Dosage: 1-2 MILLIGRAMS
     Route: 048
     Dates: start: 20171128
  3. POMALYST [Suspect]
     Active Substance: POMALIDOMIDE
     Dosage: 2 MILLIGRAM
     Route: 048
     Dates: start: 201811

REACTIONS (3)
  - Limb injury [Unknown]
  - Nail operation [Unknown]
  - Impaired healing [Unknown]
